FAERS Safety Report 12618196 (Version 1)
Quarter: 2016Q3

REPORT INFORMATION
  Report Type: Spontaneous
  Country: US (occurrence: None)
  Receive Date: 20160802
  Receipt Date: 20160802
  Transmission Date: 20161109
  Serious: Yes (Life-Threatening, Hospitalization, Disabling)
  Sender: FDA-Public Use
  Company Number: None

PATIENT
  Age: 66 Year
  Sex: Male
  Weight: 79.83 kg

DRUGS (10)
  1. CPAP [Concomitant]
     Active Substance: DEVICE
  2. RIVAROXABAN [Concomitant]
     Active Substance: RIVAROXABAN
  3. MULTIPLE VITAMIN [Concomitant]
     Active Substance: VITAMINS
  4. FUROSEMIDE. [Concomitant]
     Active Substance: FUROSEMIDE
  5. PIOGLITAZONE HCL, 30 MG MYLAN KLK/CPA/WLD [Suspect]
     Active Substance: PIOGLITAZONE
     Indication: TYPE 2 DIABETES MELLITUS
     Dosage: 30 TABLET(S) ONCE A DAY TAKEN BY MOUTH
     Route: 048
  6. ATORVASTATIN [Concomitant]
     Active Substance: ATORVASTATIN
  7. ALLOPURINOL. [Concomitant]
     Active Substance: ALLOPURINOL
  8. GLIPIZIDE. [Concomitant]
     Active Substance: GLIPIZIDE
  9. SPIRONOLACTONE. [Concomitant]
     Active Substance: SPIRONOLACTONE
  10. LISINOPRIL. [Concomitant]
     Active Substance: LISINOPRIL

REACTIONS (8)
  - Chest discomfort [None]
  - Atrial fibrillation [None]
  - Cardiac failure congestive [None]
  - Blood pressure decreased [None]
  - Ejection fraction decreased [None]
  - Cardiomyopathy [None]
  - Viral infection [None]
  - Dyspnoea [None]

NARRATIVE: CASE EVENT DATE: 20160702
